FAERS Safety Report 7730765-2 (Version None)
Quarter: 2011Q3

REPORT INFORMATION
  Report Type: 
  Country: None (occurrence: None)
  Receive Date: 20110906
  Receipt Date: 20110901
  Transmission Date: 20111222
  Serious: Yes (Other)
  Sender: FDA-Public Use
  Company Number: JP-GLAXOSMITHKLINE-B0744508A

PATIENT

DRUGS (1)
  1. DUTASTERIDE [Suspect]
     Indication: PRODUCT USED FOR UNKNOWN INDICATION
     Route: 048

REACTIONS (3)
  - BLINDNESS UNILATERAL [None]
  - GASTRITIS [None]
  - MUSCULOSKELETAL STIFFNESS [None]
